FAERS Safety Report 25539646 (Version 3)
Quarter: 2025Q3

REPORT INFORMATION
  Report Type: Spontaneous
  Country: EU (occurrence: EU)
  Receive Date: 20250710
  Receipt Date: 20250903
  Transmission Date: 20251021
  Serious: Yes (Hospitalization, Other)
  Sender: PFIZER
  Company Number: EU-PFIZER INC-PV202500081455

PATIENT
  Age: 60 Year
  Sex: Female

DRUGS (1)
  1. LORLATINIB [Suspect]
     Active Substance: LORLATINIB
     Indication: Non-small cell lung cancer
     Dosage: 100 MG, DAILY
     Dates: start: 20250603

REACTIONS (8)
  - Psychotic symptom [Unknown]
  - Epilepsy [Unknown]
  - Hallucination, auditory [Unknown]
  - Brain oedema [Recovered/Resolved]
  - Disease recurrence [Unknown]
  - Dizziness [Unknown]
  - Dysarthria [Recovering/Resolving]
  - Speech disorder [Unknown]

NARRATIVE: CASE EVENT DATE: 20250601
